FAERS Safety Report 5704448-4 (Version None)
Quarter: 2008Q2

REPORT INFORMATION
  Report Type: 
  Country: None (occurrence: None)
  Receive Date: 20080409
  Receipt Date: 20080402
  Transmission Date: 20081010
  Serious: Yes (Hospitalization)
  Sender: FDA-Public Use
  Company Number: 2008SP006373

PATIENT
  Age: 19 Year
  Sex: Female

DRUGS (3)
  1. POSACONAZOLE [Suspect]
     Dosage: ;PO
     Route: 048
     Dates: start: 20071001, end: 20080201
  2. NEORAL [Suspect]
     Dosage: 160 MG;QD;PO
     Route: 048
     Dates: start: 20071001, end: 20080126
  3. CERTICAN [Concomitant]

REACTIONS (5)
  - DIZZINESS [None]
  - HEADACHE [None]
  - HYPERTENSION [None]
  - VERTIGO [None]
  - VISUAL DISTURBANCE [None]
